FAERS Safety Report 5009400-2 (Version None)
Quarter: 2006Q2

REPORT INFORMATION
  Report Type: 
  Country: None (occurrence: None)
  Receive Date: 20060524
  Receipt Date: 20060516
  Transmission Date: 20061013
  Serious: Yes (Other)
  Sender: FDA-Public Use
  Company Number: US-JNJFOC-20060504014

PATIENT
  Sex: Male

DRUGS (6)
  1. TRAMADOL HCL [Suspect]
     Route: 048
  2. LEVETIRACETAM [Suspect]
  3. LEVETIRACETAM [Suspect]
  4. ACETAMINOPHEN [Concomitant]
     Route: 048
  5. LIDOCAINE [Concomitant]
     Route: 061
  6. VALIUM [Concomitant]
     Route: 048

REACTIONS (13)
  - BLADDER OPERATION [None]
  - CHEST PAIN [None]
  - DEPRESSION [None]
  - DIZZINESS [None]
  - DYSARTHRIA [None]
  - DYSPNOEA [None]
  - HOSTILITY [None]
  - MEMORY IMPAIRMENT [None]
  - NEUROGENIC BLADDER [None]
  - NUCLEAR MAGNETIC RESONANCE IMAGING BRAIN ABNORMAL [None]
  - PLEURAL EFFUSION [None]
  - SOMNOLENCE [None]
  - SUICIDAL IDEATION [None]
